FAERS Safety Report 8780478 (Version 1)
Quarter: 2012Q4

REPORT INFORMATION
  Report Type: Spontaneous
  Country: US (occurrence: None)
  Receive Date: 20120906
  Receipt Date: 20120906
  Transmission Date: 20130627
  Serious: Yes (Other)
  Sender: FDA-Public Use
  Company Number: None

PATIENT
  Age: 58 Year
  Sex: Female
  Weight: 78.02 kg

DRUGS (1)
  1. BENICAR [Suspect]
     Indication: BLOOD PRESSURE HIGH
     Route: 048
     Dates: start: 20120722, end: 20120902

REACTIONS (10)
  - Chest pain [None]
  - Muscle fatigue [None]
  - Headache [None]
  - Dizziness [None]
  - Insomnia [None]
  - Pruritus [None]
  - Depression [None]
  - Dyspnoea [None]
  - Pollakiuria [None]
  - Balance disorder [None]
